FAERS Safety Report 19102333 (Version 1)
Quarter: 2021Q2

REPORT INFORMATION
  Report Type: Spontaneous
  Country: US (occurrence: US)
  Receive Date: 20210407
  Receipt Date: 20210407
  Transmission Date: 20210717
  Serious: Yes (Hospitalization, Disabling, Other)
  Sender: FDA-Public Use
  Company Number: None

PATIENT
  Age: 91 Year
  Sex: Male
  Weight: 79.38 kg

DRUGS (8)
  1. METROPOL [Concomitant]
  2. NITROSTAT [Concomitant]
     Active Substance: NITROGLYCERIN
  3. FUROSEMIDE. [Suspect]
     Active Substance: FUROSEMIDE
  4. INSULIN [Concomitant]
     Active Substance: INSULIN NOS
  5. CLINDAMYCIN HCL 300MG [Suspect]
     Active Substance: CLINDAMYCIN HYDROCHLORIDE
     Indication: GINGIVITIS
     Dosage: ?          QUANTITY:3 DF DOSAGE FORM;?
     Route: 048
     Dates: start: 20210101, end: 20210101
  6. ASPIRIN. [Suspect]
     Active Substance: ASPIRIN
  7. POTASSIUM CHL [Concomitant]
  8. IRBESARTAN. [Concomitant]
     Active Substance: IRBESARTAN

REACTIONS (3)
  - Choking [None]
  - Salivary hypersecretion [None]
  - Dysphagia [None]

NARRATIVE: CASE EVENT DATE: 20210102
